FAERS Safety Report 6187681-X (Version None)
Quarter: 2009Q2

REPORT INFORMATION
  Report Type: 
  Country: None (occurrence: None)
  Receive Date: 20090511
  Receipt Date: 20090504
  Transmission Date: 20091009
  Serious: Yes (Other)
  Sender: FDA-Public Use
  Company Number: 262664

PATIENT
  Sex: Female

DRUGS (1)
  1. DOBUTAMINE [Suspect]
     Indication: STRESS ECHOCARDIOGRAM

REACTIONS (2)
  - CARDIAC PROCEDURE COMPLICATION [None]
  - STRESS CARDIOMYOPATHY [None]
